FAERS Safety Report 4972478-6 (Version None)
Quarter: 2006Q1

REPORT INFORMATION
  Report Type: 
  Country: None (occurrence: None)
  Receive Date: 20060216
  Receipt Date: 20051221
  Transmission Date: 20060701
  Serious: No
  Sender: FDA-Public Use
  Company Number: TPA2005A01715

PATIENT
  Age: 59 Year
  Sex: Female
  Weight: 57.6068 kg

DRUGS (2)
  1. ROZEREM [Suspect]
     Indication: SLEEP DISORDER
     Dosage: 8 MG, HS, PER ORAL
     Route: 048
     Dates: start: 20051001, end: 20051001
  2. AMBIEN [Suspect]
     Indication: SLEEP DISORDER
     Dosage: AS REQUIRED, PER ORAL
     Route: 048

REACTIONS (4)
  - ERYTHEMA [None]
  - HEADACHE [None]
  - INSOMNIA [None]
  - PRURITUS [None]
